FAERS Safety Report 22922412 (Version 2)
Quarter: 2024Q3

REPORT INFORMATION
  Report Type: Spontaneous
  Country: US (occurrence: None)
  Receive Date: 20230908
  Receipt Date: 20240906
  Transmission Date: 20241017
  Serious: No
  Sender: DOMPE FARMACEUTICI
  Company Number: US-FARMAPROD-202302-0453

PATIENT
  Age: 77 Year
  Sex: Female

DRUGS (6)
  1. OXERVATE [Suspect]
     Active Substance: CENEGERMIN-BKBJ
     Indication: Neurotrophic keratopathy
     Route: 047
     Dates: start: 20230206, end: 20230403
  2. OXERVATE [Suspect]
     Active Substance: CENEGERMIN-BKBJ
     Indication: Hypoaesthesia eye
     Route: 047
     Dates: start: 20230801
  3. FERROUS SULFATE [Concomitant]
     Active Substance: FERROUS SULFATE
     Dosage: 325(65) MG
  4. METFORMIN HYDROCHLORIDE [Concomitant]
     Active Substance: METFORMIN HYDROCHLORIDE
     Dosage: EXTENDED RELEASE 24 HOURS.
  5. SIMVASTATIN [Concomitant]
     Active Substance: SIMVASTATIN
  6. INSULIN ASPART [Concomitant]
     Active Substance: INSULIN ASPART
     Dosage: FLEXPEN

REACTIONS (4)
  - Eye pain [Recovering/Resolving]
  - Ocular discomfort [Recovering/Resolving]
  - Eye swelling [Recovering/Resolving]
  - Periorbital swelling [Unknown]

NARRATIVE: CASE EVENT DATE: 20230217
